FAERS Safety Report 11512810 (Version 1)
Quarter: 2015Q3

REPORT INFORMATION
  Report Type: Spontaneous
  Country: US (occurrence: None)
  Receive Date: 20150915
  Receipt Date: 20150915
  Transmission Date: 20151125
  Serious: Yes (Life-Threatening)
  Sender: FDA-Public Use
  Company Number: None

PATIENT
  Age: 63 Year
  Sex: Female
  Weight: 53.07 kg

DRUGS (6)
  1. ESTROGEN PATCHES [Concomitant]
  2. LORAZEPAM. [Concomitant]
     Active Substance: LORAZEPAM
  3. B6 [Concomitant]
     Active Substance: PYRIDOXINE HYDROCHLORIDE
  4. LEVTHYRXIN [Concomitant]
  5. SYMBACORT INHALER [Concomitant]
  6. DEXILANT [Suspect]
     Active Substance: DEXLANSOPRAZOLE
     Indication: GASTROOESOPHAGEAL REFLUX DISEASE
     Route: 048
     Dates: start: 20150902, end: 20150910

REACTIONS (11)
  - Rash [None]
  - Body temperature abnormal [None]
  - Myalgia [None]
  - Feeling hot [None]
  - Disorientation [None]
  - Musculoskeletal stiffness [None]
  - Arthralgia [None]
  - Coordination abnormal [None]
  - Abasia [None]
  - Erythema [None]
  - Chills [None]

NARRATIVE: CASE EVENT DATE: 20150902
